FAERS Safety Report 7493231-8 (Version None)
Quarter: 2011Q2

REPORT INFORMATION
  Report Type: 
  Country: None (occurrence: None)
  Receive Date: 20110520
  Receipt Date: 20110510
  Transmission Date: 20111010
  Serious: Yes (Hospitalization)
  Sender: FDA-Public Use
  Company Number: US-TYCO HEALTHCARE/MALLINCKRODT-T201100940

PATIENT
  Sex: Female

DRUGS (1)
  1. OPTIRAY 300 [Suspect]
     Indication: CATHETERISATION CARDIAC
     Dosage: LESS THAN 50 ML, SINGLE
     Route: 042
     Dates: start: 20110509, end: 20110509

REACTIONS (3)
  - URTICARIA [None]
  - GENERAL PHYSICAL HEALTH DETERIORATION [None]
  - BURNING SENSATION [None]
